FAERS Safety Report 9345999 (Version 1)
Quarter: 2013Q2

REPORT INFORMATION
  Report Type: Spontaneous
  Country: HK (occurrence: HK)
  Receive Date: 20130613
  Receipt Date: 20130613
  Transmission Date: 20140414
  Serious: Yes (Other)
  Sender: FDA-Public Use
  Company Number: PHHY2013HK058163

PATIENT
  Age: 58 Year
  Sex: Male

DRUGS (2)
  1. OMEPRAZOLE [Suspect]
     Indication: CHEST PAIN
  2. TRIMETAZIDINE [Suspect]
     Indication: CHEST PAIN

REACTIONS (5)
  - Retinopathy [Recovered/Resolved]
  - Constipation [Recovered/Resolved]
  - Blindness [Recovered/Resolved]
  - Eye haemorrhage [Recovered/Resolved]
  - Scotoma [Recovered/Resolved]
